FAERS Safety Report 6207271-X (Version None)
Quarter: 2009Q2

REPORT INFORMATION
  Report Type: 
  Country: None (occurrence: None)
  Receive Date: 20090528
  Receipt Date: 20090519
  Transmission Date: 20091009
  Serious: Yes (Life-Threatening)
  Sender: FDA-Public Use
  Company Number: SG-BAXTER-2009BH008900

PATIENT
  Age: 73 Year
  Sex: Male

DRUGS (2)
  1. SODIUM CHLORIDE 0.9% IN PLASTIC CONTAINER [Suspect]
     Indication: DRUG USE FOR UNKNOWN INDICATION
     Route: 042
     Dates: start: 20090518, end: 20090518
  2. LABETALOL HCL [Suspect]
     Indication: DRUG USE FOR UNKNOWN INDICATION
     Route: 042
     Dates: start: 20090518, end: 20090518

REACTIONS (3)
  - BLOOD PRESSURE DECREASED [None]
  - INCORRECT DRUG ADMINISTRATION RATE [None]
  - UNRESPONSIVE TO STIMULI [None]
